FAERS Safety Report 24706209 (Version 2)
Quarter: 2024Q4

REPORT INFORMATION
  Report Type: Spontaneous
  Country: US (occurrence: US)
  Receive Date: 20241206
  Receipt Date: 20241219
  Transmission Date: 20250115
  Serious: Yes (Life-Threatening, Hospitalization, Other)
  Sender: AGIOS PHARMACEUTICALS
  Company Number: US-AGIOS-2412US03969

PATIENT
  Age: 58 Year
  Sex: Female
  Weight: 103 kg

DRUGS (26)
  1. PYRUKYND [Suspect]
     Active Substance: MITAPIVAT
     Indication: Sickle cell anaemia
     Dosage: 50 MILLIGRAM, BID
     Route: 048
     Dates: start: 20240910
  2. ACETAMINOPHEN [Concomitant]
     Active Substance: ACETAMINOPHEN
     Indication: Sickle cell disease
     Dosage: 1000 MILLIGRAM, Q8HRS, PRN ORAL
     Route: 048
     Dates: start: 20240618
  3. ALBUTEROL [Concomitant]
     Active Substance: ALBUTEROL
     Indication: Wheezing
     Dosage: 90MCG/ACT 2PUFFS Q4HRS
     Route: 065
     Dates: start: 20201117
  4. AMLODIPINE [Concomitant]
     Active Substance: AMLODIPINE BESYLATE
     Indication: Hypertension
     Dosage: 10 MILLIGRAM, QD
     Route: 048
     Dates: start: 20240419
  5. ELIQUIS [Concomitant]
     Active Substance: APIXABAN
     Indication: Sickle cell disease
     Dosage: 5 MILLIGRAM, BID
     Route: 048
     Dates: start: 20240618
  6. ELIQUIS [Concomitant]
     Active Substance: APIXABAN
     Indication: Deep vein thrombosis
  7. BUMETANIDE [Concomitant]
     Active Substance: BUMETANIDE
     Indication: Sickle cell disease
     Dosage: 2 MILLIGRAM, BID
     Route: 048
     Dates: start: 20240611
  8. BUMETANIDE [Concomitant]
     Active Substance: BUMETANIDE
     Indication: Chronic kidney disease
  9. SUBOXONE [Concomitant]
     Active Substance: BUPRENORPHINE HYDROCHLORIDE\NALOXONE HYDROCHLORIDE
     Indication: Sickle cell disease
     Dosage: 12MG-3MG BID
     Route: 060
     Dates: start: 20210405
  10. SUBOXONE [Concomitant]
     Active Substance: BUPRENORPHINE HYDROCHLORIDE\NALOXONE HYDROCHLORIDE
     Indication: Pain
     Dosage: 8MG-2MG BID
     Route: 060
     Dates: start: 20210405
  11. CARVEDILOL [Concomitant]
     Active Substance: CARVEDILOL
     Indication: Hypertension
     Dosage: 25 MILLIGRAM, BID
     Route: 048
     Dates: start: 20240611
  12. CYMBALTA [Concomitant]
     Active Substance: DULOXETINE HYDROCHLORIDE
     Indication: Pain
     Dosage: 60 MILLIGRAM, QD
     Route: 048
     Dates: start: 20190606
  13. FLONASE [Concomitant]
     Active Substance: FLUTICASONE PROPIONATE
     Indication: Product used for unknown indication
     Dosage: 2 SPRAYS PRN
     Route: 045
     Dates: start: 2008
  14. FOLIC ACID [Concomitant]
     Active Substance: FOLIC ACID
     Indication: Sickle cell disease
     Dosage: 1 MILLIGRAM, QD
     Route: 048
     Dates: start: 2021
  15. GABAPENTIN [Concomitant]
     Active Substance: GABAPENTIN
     Indication: Sickle cell disease
     Dosage: 100 MILLIGRAM, BID
     Route: 048
     Dates: start: 2021
  16. GABAPENTIN [Concomitant]
     Active Substance: GABAPENTIN
     Indication: Neuralgia
  17. ISORDIL [Concomitant]
     Active Substance: ISOSORBIDE DINITRATE
     Indication: Pain
     Dosage: 10 MILLIGRAM, QD
     Route: 048
     Dates: start: 20240618
  18. VIMPAT [Concomitant]
     Active Substance: LACOSAMIDE
     Indication: Sickle cell disease
     Dosage: 100 MILLIGRAM, BID
     Route: 048
     Dates: start: 20240618
  19. VIMPAT [Concomitant]
     Active Substance: LACOSAMIDE
     Indication: Posterior reversible encephalopathy syndrome
  20. NARCAN [Concomitant]
     Active Substance: NALOXONE HYDROCHLORIDE
     Indication: Drug use disorder
     Dosage: 4MG/ACT NASAL SPRAY PRN
     Route: 045
     Dates: start: 2021
  21. OXYCODONE [Concomitant]
     Active Substance: OXYCODONE
     Indication: Sickle cell disease
     Dosage: 5 MILLIGRAM, PRN
     Route: 048
     Dates: start: 20240701
  22. TRAZODONE [Concomitant]
     Active Substance: TRAZODONE HYDROCHLORIDE
     Indication: Sickle cell anaemia
     Dosage: 25 MILLIGRAM, QD
     Route: 048
     Dates: start: 20190920
  23. TRAZODONE [Concomitant]
     Active Substance: TRAZODONE HYDROCHLORIDE
     Indication: Insomnia
  24. VOXELOTOR [Concomitant]
     Active Substance: VOXELOTOR
     Indication: Sickle cell disease
     Dosage: 500 MILLIGRAM, TID
     Route: 048
     Dates: start: 20240314, end: 20241022
  25. HYDROXYUREA [Concomitant]
     Active Substance: HYDROXYUREA
     Indication: Product used for unknown indication
  26. CYANOCOBALAMIN [Concomitant]
     Active Substance: CYANOCOBALAMIN
     Indication: Sickle cell disease
     Dosage: 1000 MICROGRAM, QD
     Route: 048
     Dates: start: 2021

REACTIONS (8)
  - Leukocytosis [Recovering/Resolving]
  - Abdominal pain [Recovering/Resolving]
  - Haemolysis [Unknown]
  - Macrocytosis [Recovering/Resolving]
  - Gastroenteritis [Unknown]
  - Constipation [Unknown]
  - Hypervolaemia [Unknown]
  - Off label use [Unknown]

NARRATIVE: CASE EVENT DATE: 20241022
